FAERS Safety Report 8834834 (Version 1)
Quarter: 2012Q4

REPORT INFORMATION
  Report Type: Report from Study
  Country: ES (occurrence: ES)
  Receive Date: 20121010
  Receipt Date: 20121010
  Transmission Date: 20130627
  Serious: Yes (Hospitalization)
  Sender: FDA-Public Use
  Company Number: ES-GLAXOSMITHKLINE-B0836335A

PATIENT
  Age: 14 Year
  Sex: Female

DRUGS (1)
  1. ACICLOVIR [Suspect]
     Indication: ENCEPHALITIS
     Route: 042

REACTIONS (1)
  - Hepatotoxicity [Unknown]
